FAERS Safety Report 5694458-8 (Version None)
Quarter: 2008Q2

REPORT INFORMATION
  Report Type: 
  Country: None (occurrence: None)
  Receive Date: 20080404
  Receipt Date: 20080326
  Transmission Date: 20081010
  Serious: Yes (Hospitalization, Other)
  Sender: FDA-Public Use
  Company Number: PHHY2008JP02339

PATIENT
  Age: 83 Year
  Sex: Female
  Weight: 63 kg

DRUGS (11)
  1. DIOVAN [Suspect]
     Indication: HYPERTENSION
     Dosage: 120 MG, QD
     Route: 048
     Dates: start: 20070801, end: 20080220
  2. DIOVAN [Suspect]
     Dosage: 40 MG/DAY
     Route: 048
     Dates: start: 20070101, end: 20070801
  3. PREDONINE [Concomitant]
     Indication: RHEUMATOID ARTHRITIS
     Dosage: 5 MG, UNK
     Route: 048
     Dates: start: 20070801
  4. VOLTAREN [Suspect]
     Indication: RHEUMATOID ARTHRITIS
     Dosage: 37.5 MG, UNK
     Route: 048
     Dates: start: 20070801
  5. DIGOXIN [Concomitant]
     Indication: CARDIAC FAILURE CHRONIC
     Dosage: 0.062 MG, UNK
     Route: 048
     Dates: start: 20070801
  6. ALDACTONE [Suspect]
     Indication: CARDIAC FAILURE CHRONIC
     Dosage: 12.5 MG, QD
     Route: 048
     Dates: start: 20070801, end: 20080206
  7. TAKEPRON [Concomitant]
     Indication: STRESS ULCER
     Dosage: 30 MG, UNK
     Route: 048
     Dates: start: 20070801
  8. WARFARIN POTASSIUM [Concomitant]
     Indication: THROMBOSIS PROPHYLAXIS
     Dosage: 1.5 MG, UNK
     Dates: start: 20070801
  9. ITOROL [Concomitant]
     Indication: CARDIAC FAILURE CHRONIC
     Dosage: 40 MG, UNK
     Route: 048
     Dates: start: 20070801
  10. HERBESSOR R [Concomitant]
     Indication: CARDIAC FAILURE
     Dosage: 200 MG, UNK
     Route: 048
     Dates: start: 20070801
  11. LENDORMIN [Concomitant]
     Indication: INSOMNIA
     Dosage: 2.5 MG, UNK
     Route: 048
     Dates: start: 20070801

REACTIONS (6)
  - ATRIAL FIBRILLATION [None]
  - BLOOD CREATININE INCREASED [None]
  - BLOOD UREA INCREASED [None]
  - CARDIAC FAILURE [None]
  - HYPERKALAEMIA [None]
  - RENAL IMPAIRMENT [None]
